FAERS Safety Report 5673055-4 (Version None)
Quarter: 2008Q1

REPORT INFORMATION
  Report Type: 
  Country: None (occurrence: None)
  Receive Date: 20080319
  Receipt Date: 20080124
  Transmission Date: 20080703
  Serious: No
  Sender: FDA-Public Use
  Company Number: US-ASTRAZENECA-2008UW01823

PATIENT
  Age: 45 Year
  Sex: Female

DRUGS (3)
  1. SYMBICORT [Suspect]
     Indication: ASTHMA
     Dosage: 160/4.5 UG 2 PUFFS BID
     Route: 055
     Dates: start: 20080101
  2. ZYRTEC-D 12 HOUR [Concomitant]
  3. ALESSE [Concomitant]

REACTIONS (5)
  - COUGH [None]
  - FATIGUE [None]
  - FEELING JITTERY [None]
  - STOMACH DISCOMFORT [None]
  - TREMOR [None]
